FAERS Safety Report 12904374 (Version 2)
Quarter: 2016Q4

REPORT INFORMATION
  Report Type: Spontaneous
  Country: GB (occurrence: GB)
  Receive Date: 20161102
  Receipt Date: 20161122
  Transmission Date: 20170207
  Serious: Yes (Life-Threatening, Hospitalization)
  Sender: FDA-Public Use
  Company Number: PHFR2016GB008529

PATIENT
  Age: 42 Year
  Sex: Female

DRUGS (2)
  1. GILENYA [Suspect]
     Active Substance: FINGOLIMOD HYDROCHLORIDE
     Dosage: 0.5 MG, QD
     Route: 048
     Dates: start: 20161026
  2. GILENYA [Suspect]
     Active Substance: FINGOLIMOD HYDROCHLORIDE
     Indication: RELAPSING-REMITTING MULTIPLE SCLEROSIS
     Dosage: 0.5 MG, QD
     Route: 048
     Dates: start: 20120307, end: 20160729

REACTIONS (13)
  - Hypoaesthesia [Unknown]
  - Quadriparesis [Unknown]
  - Nystagmus [Unknown]
  - Multiple sclerosis relapse [Recovering/Resolving]
  - Pain [Unknown]
  - Depressed level of consciousness [Unknown]
  - Bulbar palsy [Unknown]
  - Confusional state [Unknown]
  - Dysphagia [Unknown]
  - Incontinence [Unknown]
  - Asthenia [Unknown]
  - Muscle spasticity [Unknown]
  - Dysarthria [Unknown]

NARRATIVE: CASE EVENT DATE: 20160904
